FAERS Safety Report 10046786 (Version 1)
Quarter: 2014Q1

REPORT INFORMATION
  Report Type: Spontaneous
  Country: CH (occurrence: CH)
  Receive Date: 20140331
  Receipt Date: 20140331
  Transmission Date: 20141002
  Serious: Yes (Other)
  Sender: FDA-Public Use
  Company Number: CH-ASTRAZENECA-2014SE20025

PATIENT
  Age: 83 Year
  Sex: Female

DRUGS (11)
  1. BELOC ZOK [Suspect]
     Indication: ATRIAL FLUTTER
     Route: 048
  2. PHYSIOTENS [Interacting]
     Indication: ESSENTIAL HYPERTENSION
     Route: 048
     Dates: end: 201401
  3. FOSAMAX [Concomitant]
     Indication: OSTEOPOROSIS
     Route: 048
  4. PRADAXA [Concomitant]
     Indication: ATRIAL FLUTTER
     Route: 048
     Dates: end: 201401
  5. MOTILIUM [Concomitant]
  6. NEXIUM [Concomitant]
     Route: 048
  7. EUTHYROX [Concomitant]
     Indication: HYPOTHYROIDISM
     Route: 048
  8. GLUCOPHAGE [Concomitant]
     Indication: DIABETES MELLITUS
     Route: 048
     Dates: end: 201401
  9. PRAVASTATIN [Concomitant]
     Indication: DIABETES MELLITUS
     Route: 048
  10. SERTRALIN [Concomitant]
     Route: 048
  11. TEMESTA [Concomitant]
     Route: 048

REACTIONS (2)
  - Drug interaction [Unknown]
  - Withdrawal hypertension [Recovered/Resolved]
